FAERS Safety Report 7367828-X (Version None)
Quarter: 2011Q1

REPORT INFORMATION
  Report Type: 
  Country: None (occurrence: None)
  Receive Date: 20110322
  Receipt Date: 20110322
  Transmission Date: 20110831
  Serious: Yes (Hospitalization, Other)
  Sender: FDA-Public Use
  Company Number: AT-PFIZER INC-2011024613

PATIENT
  Age: 52 Year
  Sex: Female
  Weight: 79 kg

DRUGS (6)
  1. PANTOLOC ^NYCOMED^ [Concomitant]
     Indication: PROPHYLAXIS
     Dosage: UNK
     Dates: start: 20110201
  2. MOVIPREP [Concomitant]
     Indication: CONSTIPATION
     Dosage: 1 DF, 1X/DAY
     Dates: start: 20110201
  3. PASPERTIN [Concomitant]
     Indication: NAUSEA
     Dosage: UNK
     Dates: start: 20110201
  4. GUTTALAX [Concomitant]
     Indication: CONSTIPATION
     Dosage: UNK
     Dates: start: 20110201
  5. TEMSIROLIMUS [Suspect]
     Indication: RENAL CELL CARCINOMA
     Dosage: 25 MG, WEEKLY
     Route: 042
     Dates: start: 20101104, end: 20110201
  6. THYREX [Concomitant]
     Indication: PROPHYLAXIS
     Dosage: 75 MG, 1X/DAY
     Route: 048
     Dates: start: 20101001

REACTIONS (2)
  - ABDOMINAL PAIN [None]
  - PULMONARY FIBROSIS [None]
